FAERS Safety Report 18963542 (Version 3)
Quarter: 2021Q2

REPORT INFORMATION
  Report Type: Spontaneous
  Country: RU (occurrence: RU)
  Receive Date: 20210303
  Receipt Date: 20210408
  Transmission Date: 20210717
  Serious: Yes (Other)
  Sender: FDA-Public Use
  Company Number: NVSC2021RU039886

PATIENT
  Age: 37 Year
  Sex: Female
  Weight: 80 kg

DRUGS (8)
  1. AZITHROMYCIN ANHYDROUS. [Suspect]
     Active Substance: AZITHROMYCIN ANHYDROUS
     Indication: PRODUCT USED FOR UNKNOWN INDICATION
     Dosage: 500 G, QD
     Route: 065
  2. CEFTRIAXONE. [Suspect]
     Active Substance: CEFTRIAXONE
     Indication: SUSPECTED COVID-19
     Dosage: 2 G, QD
     Route: 042
     Dates: start: 20200515, end: 20200518
  3. FENTANYL. [Suspect]
     Active Substance: FENTANYL
     Indication: ANALGESIC THERAPY
     Dosage: UNK
     Route: 065
  4. VENOFER [Suspect]
     Active Substance: IRON SUCROSE
     Indication: ANAEMIA
     Dosage: UNK
     Route: 042
  5. MALTOFER (FERRIC HYDROXIDE POLYMALTOSE COMPLEX) [Suspect]
     Active Substance: IRON POLYMALTOSE
     Indication: ANAEMIA
     Dosage: UNK
     Route: 048
  6. FERINJECT [Suspect]
     Active Substance: FERRIC CARBOXYMALTOSE
     Indication: ANAEMIA
     Dosage: UNK
     Route: 042
  7. AMOKSIKLAV [Suspect]
     Active Substance: AMOXICILLIN\CLAVULANATE POTASSIUM
     Indication: SUSPECTED COVID-19
     Dosage: 1.2 G, TID
     Route: 042
     Dates: start: 20200519, end: 20200521
  8. LOPINAVIR + RITONAVIR [Suspect]
     Active Substance: LOPINAVIR\RITONAVIR
     Indication: COVID-19
     Dosage: 200 MG PLUS 50 MG 4 TIMES A DAY
     Route: 065

REACTIONS (3)
  - Foetal death [Unknown]
  - Maternal exposure during pregnancy [Unknown]
  - Product use in unapproved indication [Unknown]

NARRATIVE: CASE EVENT DATE: 20200521
